FAERS Safety Report 6208802-6 (Version None)
Quarter: 2009Q2

REPORT INFORMATION
  Report Type: 
  Country: None (occurrence: None)
  Receive Date: 20090522
  Receipt Date: 20090123
  Transmission Date: 20091009
  Serious: No
  Sender: FDA-Public Use
  Company Number: 8041741

PATIENT
  Age: 45 Year
  Sex: Female
  Weight: 52.1 kg

DRUGS (12)
  1. CIMZIA [Suspect]
     Indication: CROHN'S DISEASE
     Dosage: 400 MG SC
     Route: 058
     Dates: start: 20081222
  2. ALLEGRA [Concomitant]
  3. SUDAFED 12 HOUR [Concomitant]
  4. ALLERGY [Concomitant]
  5. NORTRIPTYLINE HCL [Concomitant]
  6. IMITREX [Concomitant]
  7. MULTI-VITAMIN [Concomitant]
  8. MILTIVITAMIN [Concomitant]
  9. ZINC SULFATE [Concomitant]
  10. MAGNESIUM SULFATE [Concomitant]
  11. CALCIUM CITRATE [Concomitant]
  12. SELENIUM [Concomitant]

REACTIONS (1)
  - NASOPHARYNGITIS [None]
